FAERS Safety Report 20706936 (Version 1)
Quarter: 2022Q2

REPORT INFORMATION
  Report Type: Spontaneous
  Country: IN (occurrence: IN)
  Receive Date: 20220413
  Receipt Date: 20220413
  Transmission Date: 20220721
  Serious: Yes (Other)
  Sender: FDA-Public Use
  Company Number: IN-SLATE RUN PHARMACEUTICALS-22IN001026

PATIENT

DRUGS (3)
  1. VANCOMYCIN HYDROCHLORIDE [Suspect]
     Active Substance: VANCOMYCIN HYDROCHLORIDE
     Indication: Staphylococcus test positive
     Dosage: 40 MG/KG/DAY
  2. RIFAMPIN [Suspect]
     Active Substance: RIFAMPIN
     Indication: Staphylococcus test positive
     Dosage: 20 MG/KG/DAY
  3. GENTAMICIN [Suspect]
     Active Substance: GENTAMICIN
     Indication: Staphylococcus test positive
     Dosage: 3 MG/KG/DAY

REACTIONS (5)
  - Cerebral infarction [Recovering/Resolving]
  - Hypoxia [Recovered/Resolved]
  - Ventricular tachycardia [Recovered/Resolved]
  - Cerebral mass effect [Recovering/Resolving]
  - Treatment failure [Recovered/Resolved]
